FAERS Safety Report 12192928 (Version 1)
Quarter: 2016Q1

REPORT INFORMATION
  Report Type: Report from Study
  Country: DE (occurrence: DE)
  Receive Date: 20160318
  Receipt Date: 20160318
  Transmission Date: 20160526
  Serious: Yes (Other)
  Sender: FDA-Public Use
  Company Number: DE-ABBVIE-16P-062-1582883-00

PATIENT
  Sex: Male

DRUGS (1)
  1. DUODOPA [Suspect]
     Active Substance: CARBIDOPA\LEVODOPA
     Indication: PARKINSON^S DISEASE
     Dosage: MD 4.6 ML; CRD 2.5 ML/ H; ED 0.7 ML
     Route: 050
     Dates: start: 20150608

REACTIONS (2)
  - Skin cancer [Not Recovered/Not Resolved]
  - Skin operation [Not Recovered/Not Resolved]
